FAERS Safety Report 16457486 (Version 6)
Quarter: 2020Q3

REPORT INFORMATION
  Report Type: Spontaneous
  Country: IE (occurrence: IE)
  Receive Date: 20190620
  Receipt Date: 20200710
  Transmission Date: 20201102
  Serious: Yes (Hospitalization, Other)
  Sender: FDA-Public Use
  Company Number: IE-PFIZER INC-2019263501

PATIENT
  Age: 48 Year
  Sex: Female

DRUGS (2)
  1. INFLIXIMAB PFIZER [Suspect]
     Active Substance: INFLIXIMAB
     Indication: COLITIS
  2. INFLIXIMAB PFIZER [Suspect]
     Active Substance: INFLIXIMAB
     Indication: COLITIS ULCERATIVE
     Dosage: UNK (INFUSION)
     Route: 065

REACTIONS (14)
  - Atrial fibrillation [Recovering/Resolving]
  - Pyrexia [Recovering/Resolving]
  - Sepsis [Recovering/Resolving]
  - Inflammatory marker increased [Recovering/Resolving]
  - Pericardial effusion [Recovering/Resolving]
  - Chest pain [Recovering/Resolving]
  - Dyspnoea exertional [Recovering/Resolving]
  - Cardiac tamponade [Recovered/Resolved]
  - Hypotension [Recovering/Resolving]
  - Haemodynamic instability [Recovering/Resolving]
  - Chills [Recovering/Resolving]
  - Leukocytosis [Recovering/Resolving]
  - Tachycardia [Recovering/Resolving]
  - Thrombocytosis [Recovering/Resolving]
